FAERS Safety Report 4541954-2 (Version None)
Quarter: 2004Q4

REPORT INFORMATION
  Report Type: 
  Country: None (occurrence: None)
  Receive Date: 20041223
  Receipt Date: 20041012
  Transmission Date: 20050328
  Serious: No
  Sender: FDA-Public Use
  Company Number: US-JNJFOC-20041004375

PATIENT
  Age: 35 Year
  Sex: Female
  Weight: 55.3388 kg

DRUGS (1)
  1. ORTHO EVRA [Suspect]
     Indication: HORMONE LEVEL ABNORMAL
     Dosage: 1 DOSE(S), 3 IN 4 WEEK, TRANSDERMAL
     Route: 062
     Dates: start: 20040101

REACTIONS (2)
  - APPLICATION SITE REACTION [None]
  - SKIN HYPERPIGMENTATION [None]
